FAERS Safety Report 8212375-6 (Version None)
Quarter: 2012Q1

REPORT INFORMATION
  Report Type: 
  Country: None (occurrence: None)
  Receive Date: 20120315
  Receipt Date: 20120302
  Transmission Date: 20120608
  Serious: Yes (Death, Other)
  Sender: FDA-Public Use
  Company Number: FR-CELGENEUS-056-21880-10091659

PATIENT
  Sex: Male
  Weight: 77 kg

DRUGS (2)
  1. REVLIMID [Suspect]
     Dosage: 25 MILLIGRAM
     Route: 048
     Dates: start: 20100806
  2. DEXAMETHASONE [Suspect]
     Dosage: 40 MILLIGRAM
     Route: 048

REACTIONS (2)
  - LOWER GASTROINTESTINAL HAEMORRHAGE [None]
  - PUNCTURE SITE HAEMORRHAGE [None]
